FAERS Safety Report 9317880 (Version 2)
Quarter: 2013Q2

REPORT INFORMATION
  Report Type: Spontaneous
  Country: BR (occurrence: BR)
  Receive Date: 20130530
  Receipt Date: 20130627
  Transmission Date: 20140414
  Serious: Yes (Death, Hospitalization)
  Sender: FDA-Public Use
  Company Number: BR-PFIZER INC-2013164534

PATIENT
  Sex: Female
  Weight: 50 kg

DRUGS (2)
  1. SUTENT [Suspect]
     Indication: RENAL CANCER
     Dosage: 50 MG (ONE CAPSULE), 1X/DAY
     Route: 048
     Dates: start: 20130416
  2. ATENOLOL [Concomitant]

REACTIONS (4)
  - Death [Fatal]
  - Blood pressure abnormal [Unknown]
  - Asthenia [Unknown]
  - Fatigue [Unknown]
